FAERS Safety Report 21368626 (Version 1)
Quarter: 2022Q3

REPORT INFORMATION
  Report Type: Spontaneous
  Country: CN (occurrence: CN)
  Receive Date: 20220923
  Receipt Date: 20220923
  Transmission Date: 20221027
  Serious: Yes (Other)
  Sender: FDA-Public Use
  Company Number: CN-BoehringerIngelheim-2022-BI-193197

PATIENT
  Age: 62 Year
  Sex: Male
  Weight: 64.000 kg

DRUGS (5)
  1. LINAGLIPTIN [Suspect]
     Active Substance: LINAGLIPTIN
     Indication: Type 2 diabetes mellitus
     Route: 048
     Dates: start: 20220905, end: 20220913
  2. DAPAGLIFLOZIN [Suspect]
     Active Substance: DAPAGLIFLOZIN
     Indication: Type 2 diabetes mellitus
     Route: 048
     Dates: start: 20220905, end: 20220913
  3. GLICLAZIDE [Suspect]
     Active Substance: GLICLAZIDE
     Indication: Type 2 diabetes mellitus
     Route: 048
     Dates: start: 20220905, end: 20220909
  4. GLICLAZIDE [Suspect]
     Active Substance: GLICLAZIDE
     Route: 048
     Dates: start: 20220909, end: 20220910
  5. METFORMIN [Suspect]
     Active Substance: METFORMIN HYDROCHLORIDE
     Indication: Type 2 diabetes mellitus
     Route: 048
     Dates: start: 20220905, end: 20220913

REACTIONS (4)
  - Palpitations [Recovered/Resolved]
  - Chest discomfort [Recovered/Resolved]
  - Hypoglycaemia [Recovered/Resolved]
  - Product use issue [Unknown]

NARRATIVE: CASE EVENT DATE: 20220910
